FAERS Safety Report 11362480 (Version 2)
Quarter: 2015Q3

REPORT INFORMATION
  Report Type: Spontaneous
  Country: CA (occurrence: CA)
  Receive Date: 20150810
  Receipt Date: 20150819
  Transmission Date: 20151125
  Serious: No
  Sender: FDA-Public Use
  Company Number: CA-GLAXOSMITHKLINE-CA2015GSK113621

PATIENT
  Sex: Female

DRUGS (2)
  1. MEKINIST [Suspect]
     Active Substance: TRAMETINIB DIMETHYL SULFOXIDE
     Indication: METASTATIC MALIGNANT MELANOMA
     Dosage: 2 MG, QD
  2. TAFINLAR [Suspect]
     Active Substance: DABRAFENIB MESYLATE
     Indication: METASTATIC MALIGNANT MELANOMA
     Dosage: 300 MG, QD
     Route: 065

REACTIONS (10)
  - Dehydration [Unknown]
  - Tension [Unknown]
  - Energy increased [Unknown]
  - Parosmia [Unknown]
  - Oral mucosal blistering [Unknown]
  - Visual impairment [Unknown]
  - Headache [Unknown]
  - Emotional disorder [Unknown]
  - Decreased appetite [Unknown]
  - Paramnesia [Unknown]
